FAERS Safety Report 7639136-0 (Version None)
Quarter: 2011Q3

REPORT INFORMATION
  Report Type: 
  Country: None (occurrence: None)
  Receive Date: 20110727
  Receipt Date: 20110722
  Transmission Date: 20111222
  Serious: Yes (Hospitalization)
  Sender: FDA-Public Use
  Company Number: JP-ACTELION-A-CH2011-50129

PATIENT
  Sex: Female
  Weight: 29 kg

DRUGS (14)
  1. URSODIOL [Concomitant]
  2. CARBOCISTEINE [Concomitant]
  3. CALCIUM POLYSTYRENE SULFONATE [Concomitant]
  4. TIOTROPIUM BROMIDE [Concomitant]
  5. TRACLEER [Suspect]
     Dosage: 31.25 MG, BID
     Route: 048
     Dates: start: 20101013, end: 20101014
  6. BENIDIPINE HYDROCHLORIDE [Concomitant]
  7. CLARITHROMYCIN [Concomitant]
  8. TRICHLORMETHIAZIDE [Concomitant]
  9. OXYGEN [Concomitant]
  10. SUCRALFATE [Concomitant]
  11. TRACLEER [Suspect]
     Indication: PULMONARY HYPERTENSION
     Dosage: 62.5 MG, BID
     Route: 048
     Dates: start: 20101015, end: 20101215
  12. FUROSEMIDE [Concomitant]
  13. FEXOFENADINE HCL [Concomitant]
  14. FLUTICASONE PROPIONATE [Concomitant]

REACTIONS (7)
  - HEPATIC ENZYME INCREASED [None]
  - ASPARTATE AMINOTRANSFERASE INCREASED [None]
  - ALANINE AMINOTRANSFERASE INCREASED [None]
  - CONCOMITANT DISEASE AGGRAVATED [None]
  - CHOLECYSTITIS [None]
  - GAMMA-GLUTAMYLTRANSFERASE INCREASED [None]
  - RESPIRATORY FAILURE [None]
